FAERS Safety Report 12156975 (Version 1)
Quarter: 2016Q1

REPORT INFORMATION
  Report Type: Spontaneous
  Country: US (occurrence: US)
  Receive Date: 20160307
  Receipt Date: 20160307
  Transmission Date: 20160526
  Serious: Yes (Hospitalization)
  Sender: FDA-Public Use
  Company Number: US-PFIZER INC-2016113017

PATIENT
  Age: 77 Year
  Sex: Female
  Weight: 63.3 kg

DRUGS (23)
  1. AMLODIPINE BESILATE [Concomitant]
     Active Substance: AMLODIPINE BESYLATE
     Dosage: 5 MG TAB, 1 TABLET DAILY
     Route: 048
  2. LEVOXYL [Concomitant]
     Active Substance: LEVOTHYROXINE SODIUM
     Dosage: 75 MCG, 1 TAB DAILY
     Route: 048
  3. ALIGN [Concomitant]
     Active Substance: BIFIDOBACTERIUM LONGUM SUBSP. INFANTIS
     Dosage: TAKE 1 CAP BY MOUTH DAILY
     Route: 048
  4. ASPIRIN /00002701/ [Concomitant]
     Active Substance: ASPIRIN
     Dosage: 81 MG TAB DISPERSIBLE, TAKE 1 TAB BY MOUTH DAILY
     Route: 048
  5. FENTANYL. [Concomitant]
     Active Substance: FENTANYL
     Dosage: 75 MCG/HR PATCH 72HR, PLACE 10 PATCHES ON THE SKIN Q72H
  6. VALACYCLOVIR HCL [Concomitant]
     Active Substance: VALACYCLOVIR HYDROCHLORIDE
     Dosage: 500 MG TAB, TAKE 1 TAB BY MOUTH DAILY
     Route: 048
  7. DEXAMETHASONE. [Suspect]
     Active Substance: DEXAMETHASONE
     Indication: PLASMA CELL MYELOMA
     Dosage: 20 MG, DAYS 8, 15 AND 22 (NO DEX ON C1D1) OF A 28-DAY CYCLE
     Route: 048
     Dates: start: 20151116
  8. CITRIC ACID-SODIUM CITRATE [Concomitant]
     Dosage: 334-500 MG/5ML SOLUTION, TAKE 30 ML BY MOUTH 3 TIMES DAILY WITH MEALS
     Route: 048
  9. SIMVASTATIN. [Concomitant]
     Active Substance: SIMVASTATIN
     Dosage: 40 MG TAB, UNK
     Route: 048
  10. TRAZODONE HYDROCHLORIDE. [Concomitant]
     Active Substance: TRAZODONE HYDROCHLORIDE
     Dosage: 25 MG, NIGHTLY
  11. ENOXAPARIN SODIUM. [Concomitant]
     Active Substance: ENOXAPARIN SODIUM
     Dosage: 80 MG/0.8ML SOLUTION
  12. LYRICA [Concomitant]
     Active Substance: PREGABALIN
     Dosage: 75 MG CAP, 75 MG, DAILY
     Route: 048
  13. CLONAZEPAM. [Concomitant]
     Active Substance: CLONAZEPAM
     Indication: PANIC DISORDER
     Dosage: 0.5 MG, 0.5 TABS 2 TIMES DAILY AS NEEDED
     Route: 048
  14. METOPROLOL TARTRATE. [Concomitant]
     Active Substance: METOPROLOL TARTRATE
     Dosage: 25 MG TAB, TAKE 1 TAB BY MOUTH DAILY
     Route: 048
  15. NASONEX [Concomitant]
     Active Substance: MOMETASONE FUROATE
     Dosage: 50 MCG/ACT SUSPENSION, 2 SPRAYS NASALLY DAILY.
     Route: 045
  16. SULFAMETHOXAZOLE AND TRIMETHOPRIM [Concomitant]
     Active Substance: SULFAMETHOXAZOLE\TRIMETHOPRIM
     Dosage: [SULFAMETHOXAZOLE 800 MG ]/[ TRIMETHOPRIM 160 MG], TAKE 1 TAB BY MOUTH DAILY
     Route: 048
  17. DEXAMETHASONE. [Concomitant]
     Active Substance: DEXAMETHASONE
     Dosage: 4 MG TAB, TAKE 5 TABS BY MOUTH ONCE A WEEK
     Route: 048
  18. LENALIDOMIDE [Suspect]
     Active Substance: LENALIDOMIDE
     Indication: PLASMA CELL MYELOMA
     Dosage: 10 MG, DAYS 8-21
     Route: 048
     Dates: start: 20151116
  19. TRINTELLIX [Concomitant]
     Active Substance: VORTIOXETINE HYDROBROMIDE
     Dosage: 10 MG
     Route: 048
  20. CYMBALTA [Concomitant]
     Active Substance: DULOXETINE HYDROCHLORIDE
     Dosage: 30 MG CAP EC, 1 CAPSULE DAILY
     Route: 048
  21. PALBOCICLIB [Suspect]
     Active Substance: PALBOCICLIB
     Indication: PLASMA CELL MYELOMA
     Dosage: 100 MG, DAYS 0-14
     Route: 048
     Dates: start: 20151116
  22. ACYCLOVIR /00587301/ [Concomitant]
     Active Substance: ACYCLOVIR
     Dosage: 5%
  23. OFLOXACIN. [Concomitant]
     Active Substance: OFLOXACIN
     Dosage: 0.3%

REACTIONS (2)
  - Femur fracture [Unknown]
  - Fall [Unknown]

NARRATIVE: CASE EVENT DATE: 20160219
